FAERS Safety Report 23033376 (Version 1)
Quarter: 2023Q4

REPORT INFORMATION
  Report Type: Spontaneous
  Country: TH (occurrence: TH)
  Receive Date: 20231005
  Receipt Date: 20231005
  Transmission Date: 20240109
  Serious: Yes (Other)
  Sender: FDA-Public Use
  Company Number: TH-PFIZER INC-PV202300161271

PATIENT
  Age: 53 Year
  Sex: Female
  Weight: 57 kg

DRUGS (6)
  1. XALKORI [Suspect]
     Active Substance: CRIZOTINIB
     Indication: Non-small cell lung cancer
     Dosage: 250 MG TWICE DAILY
     Route: 048
     Dates: start: 20230530
  2. ENOXA [Concomitant]
     Dosage: 0.8 ML, 1X/DAY
     Route: 058
  3. ACETYLCYSTEINE [Concomitant]
     Active Substance: ACETYLCYSTEINE
     Dosage: UNK, 3X/DAY
  4. ROPECT [CODEINE PHOSPHATE;GUAIFENESIN;PHENYLPROPANOLAMINE HYDROCHLORID [Concomitant]
     Dosage: UNK, 3X/DAY
  5. MTV [Concomitant]
     Dosage: UNK, 3X/DAY
  6. MIRACID [ALUMINIUM HYDROXIDE;MAGNESIUM HYDROXIDE;SIMETICONE] [Concomitant]
     Dosage: UNK, 2X/DAY

REACTIONS (10)
  - Pericardial effusion [Unknown]
  - Neoplasm progression [Unknown]
  - Pleural effusion [Unknown]
  - Cardiomegaly [Unknown]
  - Cough [Unknown]
  - Fatigue [Unknown]
  - Hepatic lesion [Unknown]
  - Hypotension [Unknown]
  - Granuloma [Unknown]
  - Decubitus ulcer [Recovering/Resolving]

NARRATIVE: CASE EVENT DATE: 20230907
